FAERS Safety Report 5289000-X (Version None)
Quarter: 2007Q1

REPORT INFORMATION
  Report Type: 
  Country: None (occurrence: None)
  Receive Date: 20070118
  Receipt Date: 20061218
  Transmission Date: 20070707
  Serious: Yes (Other)
  Sender: FDA-Public Use
  Company Number: HQWYE712120DEC06

PATIENT
  Age: 62 Year
  Sex: Female
  Weight: 50.85 kg

DRUGS (2)
  1. ADVIL PM [Suspect]
     Indication: ANALGESIC EFFECT
     Dosage: 2 CAPLETS DAILY AT BEDTIME, ORAL
     Route: 048
     Dates: start: 20061215, end: 20061216
  2. ADVIL PM [Suspect]
     Indication: INSOMNIA
     Dosage: 2 CAPLETS DAILY AT BEDTIME, ORAL
     Route: 048
     Dates: start: 20061215, end: 20061216

REACTIONS (2)
  - DRUG INEFFECTIVE [None]
  - RESTLESSNESS [None]
